FAERS Safety Report 13200800 (Version 1)
Quarter: 2017Q1

REPORT INFORMATION
  Report Type: Spontaneous
  Country: US (occurrence: US)
  Receive Date: 20170209
  Receipt Date: 20170209
  Transmission Date: 20170428
  Serious: No
  Sender: FDA-Public Use
  Company Number: US-B.I. PHARMACEUTICALS,INC./RIDGEFIELD-2017-BI-006369

PATIENT
  Age: 79 Year
  Sex: Female

DRUGS (10)
  1. LEVOTHYROXINE. [Concomitant]
     Active Substance: LEVOTHYROXINE
     Indication: BLOOD CHOLESTEROL INCREASED
     Dosage: ONCE DAILY;  FORM STRENGTH: 0.1MG; FORMULATION: TABLET
     Route: 048
  2. POTASSIUM [Concomitant]
     Active Substance: POTASSIUM
     Indication: PRODUCT USED FOR UNKNOWN INDICATION
     Dosage: ONCE DAILY;  FORM STRENGTH: 10MCG; FORMULATION: TABLET
     Route: 048
     Dates: start: 2012
  3. CALCIUM [Concomitant]
     Active Substance: CALCIUM
     Indication: PRODUCT USED FOR UNKNOWN INDICATION
     Dosage: ONCE DAILY;  FORM STRENGTH: 600MG; FORMULATION: TABLET
     Route: 048
  4. GILOTRIF [Suspect]
     Active Substance: AFATINIB
     Dosage: ONCE DAILY;  FORM STRENGTH: 20MG; FORMULATION: TABLET? ADMINISTRATION CORRECT? YES ?ACTION(S) TAKEN
     Route: 048
     Dates: start: 201701
  5. GILOTRIF [Suspect]
     Active Substance: AFATINIB
     Indication: LUNG NEOPLASM MALIGNANT
     Dosage: ONCE DAILY;  FORM STRENGTH: 40 MG; FORMULATION: TABLET? ADMINISTRATION CORRECT? YES ?ACTION(S) TAKEN
     Route: 048
     Dates: start: 201608, end: 201609
  6. PRAVASTATIN. [Concomitant]
     Active Substance: PRAVASTATIN
     Indication: BLOOD CHOLESTEROL INCREASED
     Dosage: ONCE DAILY;  FORM STRENGTH: 40MG; FORMULATION: TABLET
     Route: 048
     Dates: start: 2007
  7. METFORMIN [Concomitant]
     Active Substance: METFORMIN HYDROCHLORIDE
     Indication: DIABETES MELLITUS
     Dosage: TWICE A DAY;  FORM STRENGTH: 500MG; FORMULATION: TABLET
     Route: 048
     Dates: start: 2012
  8. AMLODIPINE [Concomitant]
     Active Substance: AMLODIPINE BESYLATE
     Indication: HYPERTENSION
     Dosage: ONCE DAILY;  FORMULATION: TABLET;
     Route: 048
     Dates: start: 2014
  9. LOSARTIN [Concomitant]
     Active Substance: LOSARTAN
     Indication: HYPERTENSION
     Dosage: ONCE DAILY;  FORM STRENGTH: 12.5MG; FORMULATION: TABLET
     Route: 048
  10. GILOTRIF [Suspect]
     Active Substance: AFATINIB
     Dosage: ONCE DAILY;  FORM STRENGTH: 30MG; FORMULATION: TABLET? ADMINISTRATION CORRECT? YES ?ACTION(S) TAKEN
     Route: 048
     Dates: start: 201609, end: 201701

REACTIONS (8)
  - Rash [Recovered/Resolved]
  - Vomiting [Recovered/Resolved]
  - Diarrhoea [Not Recovered/Not Resolved]
  - Infection [Recovered/Resolved]
  - Nausea [Not Recovered/Not Resolved]
  - Alopecia [Not Recovered/Not Resolved]
  - Dry skin [Recovered/Resolved]
  - Decreased appetite [Recovered/Resolved]

NARRATIVE: CASE EVENT DATE: 201608
